FAERS Safety Report 25593358 (Version 2)
Quarter: 2025Q3

REPORT INFORMATION
  Report Type: Spontaneous
  Country: US (occurrence: US)
  Receive Date: 20250722
  Receipt Date: 20250825
  Transmission Date: 20251020
  Serious: No
  Sender: GALDERMA
  Company Number: US-GALDERMA-US2025011055

PATIENT

DRUGS (1)
  1. NEMLUVIO [Suspect]
     Active Substance: NEMOLIZUMAB-ILTO
     Indication: Dermatitis atopic
     Route: 058
     Dates: start: 202506, end: 202506

REACTIONS (3)
  - Headache [Unknown]
  - Myalgia [Unknown]
  - Abdominal pain upper [Unknown]

NARRATIVE: CASE EVENT DATE: 20250101
